FAERS Safety Report 5615369-X (Version None)
Quarter: 2008Q1

REPORT INFORMATION
  Report Type: 
  Country: None (occurrence: None)
  Receive Date: 20080201
  Receipt Date: 20080122
  Transmission Date: 20080703
  Serious: Yes (Hospitalization, Other)
  Sender: FDA-Public Use
  Company Number: 2008AL000383

PATIENT
  Sex: 0

DRUGS (1)
  1. PHENOBARBITAL TAB [Suspect]
     Indication: EPILEPSY
     Dosage: BID
     Dates: start: 20010101

REACTIONS (12)
  - ABNORMAL BEHAVIOUR [None]
  - AGGRESSION [None]
  - AKATHISIA [None]
  - CONVULSION [None]
  - GASTROINTESTINAL DISORDER [None]
  - HEADACHE [None]
  - IRRITABILITY [None]
  - MYOCLONIC EPILEPSY [None]
  - PSYCHOMOTOR HYPERACTIVITY [None]
  - RESTLESSNESS [None]
  - SLEEP DISORDER [None]
  - STATUS EPILEPTICUS [None]
